FAERS Safety Report 9741756 (Version 5)
Quarter: 2014Q2

REPORT INFORMATION
  Report Type: Report from Study
  Country: CA (occurrence: CA)
  Receive Date: 20131210
  Receipt Date: 20140410
  Transmission Date: 20141212
  Serious: Yes (Hospitalization)
  Sender: FDA-Public Use
  Company Number: CA-ROCHE-1310534

PATIENT
  Age: 43 Year
  Sex: Male
  Weight: 109.5 kg

DRUGS (4)
  1. TYLENOL [Concomitant]
     Indication: HEADACHE
     Route: 065
     Dates: start: 2013, end: 20131127
  2. VITAMIN C [Concomitant]
     Route: 065
     Dates: start: 20131126
  3. VEMURAFENIB [Suspect]
     Indication: MALIGNANT MELANOMA
     Dosage: LAST DOSE PRIOR TO SAE ON 23/NOV/2013
     Route: 048
     Dates: start: 20131121, end: 20131124
  4. VEMURAFENIB [Suspect]
     Route: 048
     Dates: start: 20131129

REACTIONS (1)
  - Lipase increased [Recovered/Resolved]
